FAERS Safety Report 10239443 (Version 1)
Quarter: 2014Q2

REPORT INFORMATION
  Report Type: Spontaneous
  Country: IT (occurrence: IT)
  Receive Date: 20140616
  Receipt Date: 20140616
  Transmission Date: 20141212
  Serious: Yes (Hospitalization)
  Sender: FDA-Public Use
  Company Number: IT-TEVA-487426ISR

PATIENT
  Age: 59 Year
  Sex: Female
  Weight: 67 kg

DRUGS (3)
  1. CARBOLITHIUM [Suspect]
     Indication: PSYCHOTIC DISORDER
     Dosage: 600 MILLIGRAM DAILY; IN THE MORNING AND IN THE EVENING
     Route: 048
     Dates: start: 20140405, end: 20140410
  2. CARBOLITHIUM [Interacting]
     Dosage: 150 MILLIGRAM DAILY; IN THE AFTERNOON
     Route: 048
     Dates: start: 20140405, end: 20140410
  3. DROPAXIN 10 MG/ML [Interacting]
     Indication: PSYCHOTIC DISORDER
     Route: 048

REACTIONS (5)
  - Confusional state [Recovered/Resolved]
  - Dysarthria [Recovered/Resolved]
  - Tremor [Recovered/Resolved]
  - Drug interaction [Recovered/Resolved]
  - Blood sodium decreased [None]
